FAERS Safety Report 7283706 (Version 2)
Quarter: 2013Q4

REPORT INFORMATION
  Report Type: Spontaneous
  Country: US (occurrence: US)
  Receive Date: 20100218
  Receipt Date: 20131217
  Transmission Date: 20140711
  Serious: No
  Sender: FDA-Public Use
  Company Number: US-ASTRAZENECA-2009SE20104

PATIENT
  Age: 69 Year
  Sex: Female

DRUGS (3)
  1. ACCOLATE [Suspect]
     Indication: ASTHMA
     Route: 048
  2. ACCOLATE [Interacting]
     Indication: ASTHMA
     Dosage: 20 MG, GENERIC
     Route: 048
  3. SIMVASTATIN [Interacting]
     Route: 065

REACTIONS (4)
  - Drug interaction [Unknown]
  - Withdrawal syndrome [Unknown]
  - Drug hypersensitivity [Unknown]
  - Product quality issue [Unknown]
